FAERS Safety Report 4718744-0 (Version None)
Quarter: 2005Q3

REPORT INFORMATION
  Report Type: 
  Country: None (occurrence: None)
  Receive Date: 20050719
  Receipt Date: 20050705
  Transmission Date: 20060218
  Serious: Yes (Other)
  Sender: FDA-Public Use
  Company Number: HQWYE154612JUL05

PATIENT
  Age: 5 Year
  Sex: Male

DRUGS (3)
  1. MYLOTARG [Suspect]
     Indication: ACUTE PROMYELOCYTIC LEUKAEMIA
     Dosage: 6 MG/M2 TIMES 4 COURSES (TOTAL DOSE = 24 MG/M2), UNKNOWN
  2. TACROLIMUS [Concomitant]
  3. METHYLPREDNISOLONE 16MG TAB [Concomitant]

REACTIONS (12)
  - BIOPSY LIVER ABNORMAL [None]
  - CORD BLOOD TRANSPLANT THERAPY [None]
  - ENDOSCOPY ABNORMAL [None]
  - HAEMATEMESIS [None]
  - HEPATIC CONGESTION [None]
  - HEPATIC FIBROSIS [None]
  - HEPATOMEGALY [None]
  - SEPSIS [None]
  - ULCER [None]
  - VARICES OESOPHAGEAL [None]
  - VENOOCCLUSIVE LIVER DISEASE [None]
  - WEIGHT INCREASED [None]
